FAERS Safety Report 19841436 (Version 2)
Quarter: 2021Q4

REPORT INFORMATION
  Report Type: Spontaneous
  Country: US (occurrence: US)
  Receive Date: 20210916
  Receipt Date: 20211012
  Transmission Date: 20220303
  Serious: No
  Sender: FDA-Public Use
  Company Number: US-JNJFOC-20210906814

PATIENT
  Age: 58 Year
  Sex: Female

DRUGS (1)
  1. WOMENS ROGAINE UNSCENTED [Suspect]
     Active Substance: MINOXIDIL
     Indication: Alopecia
     Dosage: 1 CAPFUL
     Route: 061
     Dates: start: 202105

REACTIONS (2)
  - Application site pruritus [Unknown]
  - Overdose [Unknown]

NARRATIVE: CASE EVENT DATE: 20210101
